FAERS Safety Report 9213763 (Version 1)
Quarter: 2013Q2

REPORT INFORMATION
  Report Type: Spontaneous
  Country: CA (occurrence: CA)
  Receive Date: 20130405
  Receipt Date: 20130405
  Transmission Date: 20140414
  Serious: Yes (Other)
  Sender: FDA-Public Use
  Company Number: CA-JNJFOC-20120207090

PATIENT
  Age: 65 Year
  Sex: Male
  Weight: 106 kg

DRUGS (10)
  1. REMICADE [Suspect]
     Indication: CROHN^S DISEASE
     Dosage: TOTAL NUMBER OF INFUSIONS RECEIVED: 47
     Route: 042
     Dates: start: 20080312
  2. CRESTOR [Concomitant]
     Indication: DYSLIPIDAEMIA
     Route: 065
  3. ACTOS [Concomitant]
     Indication: HYPOGLYCAEMIA
     Route: 065
  4. SYNTHROID [Concomitant]
     Indication: HYPOTHYROIDISM
     Route: 065
  5. BISOPROLOL [Concomitant]
     Indication: HYPERTENSION
     Route: 065
  6. APO HYDRO [Concomitant]
     Indication: DIURETIC THERAPY
     Route: 065
  7. ATACAND [Concomitant]
     Indication: HYPERTENSION
     Route: 065
  8. METFORMIN [Concomitant]
     Indication: HYPERGLYCAEMIA
     Route: 065
  9. ZOPICLONE [Concomitant]
     Indication: INSOMNIA
     Route: 065
  10. RASILEZ [Concomitant]
     Indication: HYPERTENSION
     Route: 065

REACTIONS (2)
  - Pneumonia [Recovered/Resolved]
  - Immune system disorder [Unknown]
